FAERS Safety Report 6673800-5 (Version None)
Quarter: 2010Q2

REPORT INFORMATION
  Report Type: 
  Country: None (occurrence: None)
  Receive Date: 20100407
  Receipt Date: 20100326
  Transmission Date: 20101027
  Serious: Yes (Hospitalization)
  Sender: FDA-Public Use
  Company Number: 2010039647

PATIENT
  Age: 54 Year
  Sex: Female

DRUGS (14)
  1. FRAGMIN [Suspect]
     Indication: PULMONARY EMBOLISM
     Dosage: 10000 IU, SUBCUTANEOUS
     Route: 058
     Dates: start: 20100215, end: 20100217
  2. THEOPLUS (THEOPHYLLINE) [Concomitant]
  3. RHEFLUIN ^LECIVA^ (AMILORIDE HYDROCHLORIDE, HYDROCHLOROTHIAZIDE) [Concomitant]
  4. IBUPROFEN [Concomitant]
  5. TRAMADOL HYDROHLORIDE [Concomitant]
  6. METRONIDAZOLE [Concomitant]
  7. MILURIT (ALLOPURINOL) [Concomitant]
  8. GLUCOPHAGE [Concomitant]
  9. VENTOLIN [Concomitant]
  10. HELICID (OMEPRAZOLE) [Concomitant]
  11. CODEINE SUL TAB [Concomitant]
  12. KALII CHLORIDUM (POTASSIUM CHLORIDE) [Concomitant]
  13. AMLODIPINE [Concomitant]
  14. SERETIDE (FLUTICASONE PROPIONATE, SALMETEROL XINAFOATE) [Concomitant]

REACTIONS (5)
  - ABDOMINAL PAIN [None]
  - ANAEMIA [None]
  - HYPOTENSION [None]
  - MINERAL METABOLISM DISORDER [None]
  - SUBCUTANEOUS HAEMATOMA [None]
